APPROVED DRUG PRODUCT: AZITHROMYCIN
Active Ingredient: AZITHROMYCIN
Strength: EQ 500MG BASE/VIAL
Dosage Form/Route: INJECTABLE;INJECTION
Application: A065265 | Product #001
Applicant: HIKMA PHARMACEUTICALS USA INC
Approved: Jan 18, 2007 | RLD: No | RS: No | Type: DISCN